FAERS Safety Report 5629392-2 (Version None)
Quarter: 2008Q1

REPORT INFORMATION
  Report Type: 
  Country: None (occurrence: None)
  Receive Date: 20080218
  Receipt Date: 20080208
  Transmission Date: 20080703
  Serious: Yes (Death, Hospitalization)
  Sender: FDA-Public Use
  Company Number: US-BAYER-US-2006-035704

PATIENT
  Age: 58 Year
  Sex: Male
  Weight: 122 kg

DRUGS (92)
  1. CAMPATH [Suspect]
     Indication: CHRONIC LYMPHOCYTIC LEUKAEMIA
     Route: 058
     Dates: start: 20061023, end: 20061027
  2. CAMPATH [Suspect]
     Route: 058
     Dates: start: 20060905, end: 20060911
  3. CAMPATH [Suspect]
     Route: 058
     Dates: start: 20060807, end: 20060811
  4. CAMPATH [Suspect]
     Route: 058
     Dates: start: 20060605, end: 20060609
  5. CAMPATH [Suspect]
     Route: 058
     Dates: start: 20060710, end: 20060714
  6. FLUDARA [Suspect]
     Indication: CHRONIC LYMPHOCYTIC LEUKAEMIA
     Route: 042
     Dates: start: 20060710, end: 20060714
  7. FLUDARA [Suspect]
     Route: 042
     Dates: start: 20060605, end: 20060609
  8. FLUDARA [Suspect]
     Route: 042
     Dates: start: 20060905, end: 20060911
  9. FLUDARA [Suspect]
     Route: 042
     Dates: start: 20061023, end: 20061027
  10. FLUDARA [Suspect]
     Route: 042
     Dates: start: 20060807, end: 20060811
  11. NEULASTA [Concomitant]
     Indication: NEUTROPENIA
     Dosage: UNIT DOSE: 6 MG
     Route: 058
     Dates: start: 20061031, end: 20061031
  12. NEULASTA [Concomitant]
     Dosage: UNIT DOSE: 6 MG
     Route: 058
     Dates: start: 20060919, end: 20060919
  13. PHENERGAN HCL [Concomitant]
     Indication: HICCUPS
     Route: 042
     Dates: start: 20061115, end: 20061116
  14. PHENERGAN HCL [Concomitant]
     Dosage: UNIT DOSE: 12.5 MG
     Route: 042
     Dates: start: 20061116, end: 20061116
  15. TYLENOL (CAPLET) [Concomitant]
     Indication: PYREXIA
     Route: 048
     Dates: start: 20061101
  16. TYLENOL (CAPLET) [Concomitant]
     Route: 048
     Dates: start: 20060605, end: 20060609
  17. BACTRIM DS [Concomitant]
     Indication: PROPHYLAXIS
     Dates: end: 20061101
  18. FAMVIR [Concomitant]
     Indication: PROPHYLAXIS
     Route: 048
     Dates: start: 20061116, end: 20061118
  19. FAMVIR [Concomitant]
     Route: 048
     Dates: start: 20060605, end: 20061114
  20. FLAGYL [Concomitant]
     Indication: DIARRHOEA
     Route: 048
     Dates: start: 20061110, end: 20061119
  21. GLYBURIDE [Concomitant]
     Indication: DIABETES MELLITUS
     Route: 048
     Dates: start: 19980531, end: 20061114
  22. METFORMIN HCL [Concomitant]
     Dosage: UNIT DOSE: 500 MG
     Route: 048
     Dates: end: 20061101
  23. NIFEDIPINE [Concomitant]
     Indication: HYPERTENSION
     Dosage: UNIT DOSE: 60 MG
     Route: 048
     Dates: start: 19860101, end: 20061114
  24. NIFEDIPINE [Concomitant]
     Dosage: UNIT DOSE: 60 MG
     Route: 048
     Dates: start: 20061119
  25. LISINOPRIL [Concomitant]
     Dosage: UNIT DOSE: 40 MG
     Route: 048
     Dates: start: 19980101, end: 20061114
  26. LOVASTATIN [Concomitant]
     Indication: HYPERLIPIDAEMIA
     Route: 048
     Dates: start: 20050805, end: 20061116
  27. EPOGEN [Concomitant]
     Dates: start: 20061101
  28. ZOSYN [Concomitant]
     Route: 042
     Dates: start: 20061114, end: 20061115
  29. ZOSYN [Concomitant]
     Route: 042
     Dates: start: 20061115, end: 20061117
  30. DIFLUCAN [Concomitant]
     Dosage: UNIT DOSE: 200 MG
     Route: 042
     Dates: start: 20061115, end: 20061115
  31. VANCOMYCIN [Concomitant]
     Route: 042
     Dates: start: 20061114, end: 20061114
  32. INSULIN [Concomitant]
     Dates: start: 20061101
  33. ALLOPURINOL [Concomitant]
     Indication: PROPHYLAXIS
     Route: 048
     Dates: start: 20060603, end: 20060617
  34. BACTRIM DS [Concomitant]
     Indication: ANTIFUNGAL PROPHYLAXIS
     Route: 048
     Dates: start: 20060605, end: 20061114
  35. BACTRIM DS [Concomitant]
     Route: 048
     Dates: start: 20061115, end: 20061117
  36. TYLENOL (CAPLET) [Concomitant]
     Route: 048
     Dates: start: 20061023, end: 20061027
  37. TYLENOL (CAPLET) [Concomitant]
     Route: 048
     Dates: start: 20060905, end: 20060905
  38. TYLENOL (CAPLET) [Concomitant]
     Route: 048
     Dates: start: 20060809, end: 20060809
  39. TYLENOL (CAPLET) [Concomitant]
     Route: 048
     Dates: start: 20060712, end: 20060813
  40. TYLENOL (CAPLET) [Concomitant]
     Route: 048
     Dates: start: 20060911, end: 20060911
  41. TYLENOL (CAPLET) [Concomitant]
     Dates: start: 20060605, end: 20060606
  42. TYLENOL (CAPLET) [Concomitant]
     Route: 048
     Dates: start: 20061031, end: 20061118
  43. TYLENOL (CAPLET) [Concomitant]
     Route: 048
     Dates: start: 20060605, end: 20060609
  44. TYLENOL (CAPLET) [Concomitant]
     Route: 048
     Dates: start: 20060605, end: 20060609
  45. TYLENOL (CAPLET) [Concomitant]
     Route: 048
     Dates: start: 20060610, end: 20060614
  46. TYLENOL (CAPLET) [Concomitant]
     Route: 048
     Dates: start: 20060807, end: 20060811
  47. TYLENOL (CAPLET) [Concomitant]
     Route: 048
     Dates: start: 20060905, end: 20060908
  48. TYLENOL (CAPLET) [Concomitant]
     Route: 048
     Dates: start: 20060710, end: 20060711
  49. BENADRYL ^PARKE DAVIS^ /AUT/ [Concomitant]
     Indication: PROPHYLAXIS
     Route: 042
     Dates: start: 20060807, end: 20060811
  50. BENADRYL ^PARKE DAVIS^ /AUT/ [Concomitant]
     Route: 048
     Dates: start: 20060813, end: 20060816
  51. BENADRYL ^PARKE DAVIS^ /AUT/ [Concomitant]
     Route: 048
     Dates: start: 20061023, end: 20061023
  52. BENADRYL ^PARKE DAVIS^ /AUT/ [Concomitant]
     Route: 042
     Dates: start: 20060605, end: 20060609
  53. BENADRYL ^PARKE DAVIS^ /AUT/ [Concomitant]
     Route: 042
     Dates: start: 20060911, end: 20060911
  54. BENADRYL ^PARKE DAVIS^ /AUT/ [Concomitant]
     Route: 042
     Dates: start: 20060905, end: 20060908
  55. BENADRYL ^PARKE DAVIS^ /AUT/ [Concomitant]
     Route: 048
     Dates: start: 20061024, end: 20061027
  56. BENADRYL ^PARKE DAVIS^ /AUT/ [Concomitant]
     Route: 042
     Dates: start: 20060610, end: 20060614
  57. ANZEMET [Concomitant]
     Indication: PROPHYLAXIS OF NAUSEA AND VOMITING
     Route: 042
     Dates: start: 20061023, end: 20061026
  58. ANZEMET [Concomitant]
     Route: 042
     Dates: start: 20060807, end: 20060810
  59. ANZEMET [Concomitant]
     Route: 042
     Dates: start: 20060610, end: 20060613
  60. ANZEMET [Concomitant]
     Route: 042
     Dates: start: 20060605, end: 20060608
  61. HEPARIN [Concomitant]
     Route: 042
     Dates: start: 20060605, end: 20061128
  62. ALOXI [Concomitant]
     Indication: PROPHYLAXIS OF NAUSEA AND VOMITING
     Dosage: UNIT DOSE: 250 ?G
     Route: 042
     Dates: start: 20060811, end: 20060811
  63. ALOXI [Concomitant]
     Dosage: UNIT DOSE: 250 ?G
     Route: 048
     Dates: start: 20060911, end: 20060911
  64. ALOXI [Concomitant]
     Dosage: UNIT DOSE: 250 ?G
     Route: 042
     Dates: start: 20060614, end: 20060614
  65. ALOXI [Concomitant]
     Dosage: UNIT DOSE: 250 ?G
     Route: 042
     Dates: start: 20061027, end: 20061027
  66. ALOXI [Concomitant]
     Dosage: UNIT DOSE: 250 ?G
     Route: 042
     Dates: start: 20060609, end: 20060609
  67. SOLU-MEDROL [Concomitant]
     Route: 042
     Dates: start: 20061025, end: 20061027
  68. SOLU-MEDROL [Concomitant]
     Route: 042
     Dates: start: 20061023, end: 20061023
  69. SOLU-MEDROL [Concomitant]
     Route: 042
     Dates: start: 20060611, end: 20060611
  70. SOLU-MEDROL [Concomitant]
     Route: 042
     Dates: start: 20060607, end: 20060609
  71. SOLU-MEDROL [Concomitant]
     Route: 042
     Dates: start: 20061024, end: 20061024
  72. SOLU-MEDROL [Concomitant]
     Route: 042
     Dates: start: 20060606, end: 20060606
  73. ARANESP [Concomitant]
     Indication: ANAEMIA
     Dosage: UNIT DOSE: 200 ?G
     Route: 042
     Dates: start: 20061002, end: 20061002
  74. ARANESP [Concomitant]
     Dosage: UNIT DOSE: 200 ?G
     Route: 042
     Dates: start: 20060919, end: 20060919
  75. ARANESP [Concomitant]
     Dosage: UNIT DOSE: 200 ?G
     Route: 042
     Dates: start: 20060815, end: 20060815
  76. ARANESP [Concomitant]
     Dosage: UNIT DOSE: 200 ?G
     Route: 058
     Dates: start: 20060613, end: 20060613
  77. ARANESP [Concomitant]
     Dosage: UNIT DOSE: 200 ?G
     Route: 058
     Dates: start: 20060620, end: 20060620
  78. ARANESP [Concomitant]
     Dosage: UNIT DOSE: 200 ?G
     Route: 058
     Dates: start: 20060625, end: 20060625
  79. ARANESP [Concomitant]
     Dosage: UNIT DOSE: 200 ?G
     Route: 058
     Dates: start: 20060807, end: 20060807
  80. VALCYTE [Concomitant]
     Route: 048
     Dates: start: 20060801, end: 20060822
  81. AMOXICILLIN [Concomitant]
     Indication: GINGIVAL INFECTION
     Route: 048
     Dates: start: 20060729, end: 20060807
  82. DIFLUCAN [Concomitant]
     Indication: PERIODONTAL DISEASE
     Route: 048
     Dates: start: 20060730, end: 20060811
  83. DIFLUCAN [Concomitant]
     Route: 048
     Dates: start: 20060729, end: 20060729
  84. DOXYCYCLINE [Concomitant]
     Indication: PERIODONTAL DISEASE
     Route: 061
     Dates: start: 20060629, end: 20060802
  85. LEVAQUIN [Concomitant]
     Route: 048
     Dates: start: 20061116, end: 20061120
  86. LEVAQUIN [Concomitant]
     Route: 048
     Dates: start: 20060922, end: 20060926
  87. LEVAQUIN [Concomitant]
     Route: 048
     Dates: start: 20061102, end: 20061111
  88. CLARITIN [Concomitant]
     Indication: TREMOR
     Route: 048
     Dates: start: 20061104, end: 20061105
  89. PROCRIT [Concomitant]
     Indication: ANAEMIA
     Dosage: UNIT DOSE: 40000 IU
     Route: 058
     Dates: start: 20061117, end: 20061117
  90. GENTAMYCIN-MP [Concomitant]
     Dosage: UNIT DOSE: 110 MG
     Route: 042
     Dates: start: 20061118, end: 20061118
  91. SODIUM BICARBONATE [Concomitant]
     Indication: METABOLIC ACIDOSIS
     Route: 042
     Dates: start: 20061124, end: 20061128
  92. SODIUM BICARBONATE [Concomitant]
     Route: 042
     Dates: start: 20061118, end: 20061118

REACTIONS (12)
  - BACTERAEMIA [None]
  - COAGULOPATHY [None]
  - HAEMORRHAGE [None]
  - HEPATIC FAILURE [None]
  - HYPOTENSION [None]
  - HYPOXIA [None]
  - INTESTINAL ISCHAEMIA [None]
  - MULTI-ORGAN FAILURE [None]
  - PANCYTOPENIA [None]
  - PYREXIA [None]
  - RENAL FAILURE ACUTE [None]
  - RESPIRATORY FAILURE [None]
